FAERS Safety Report 6030677-9 (Version None)
Quarter: 2009Q1

REPORT INFORMATION
  Report Type: 
  Country: None (occurrence: None)
  Receive Date: 20090106
  Receipt Date: 20090106
  Transmission Date: 20090719
  Serious: Yes (Other)
  Sender: FDA-Public Use
  Company Number: None

PATIENT
  Sex: Female
  Weight: 90.7194 kg

DRUGS (2)
  1. CYMBALTA [Suspect]
     Indication: DEPRESSION
     Dosage: 60 MG ONCE A DAY PO
     Route: 048
     Dates: start: 20061101, end: 20081231
  2. CYMBALTA [Suspect]
     Indication: PAIN IN EXTREMITY
     Dosage: 60 MG ONCE A DAY PO
     Route: 048
     Dates: start: 20061101, end: 20081231

REACTIONS (19)
  - ABDOMINAL DISTENSION [None]
  - ABNORMAL BEHAVIOUR [None]
  - ANGER [None]
  - ANXIETY [None]
  - APATHY [None]
  - DEPRESSION [None]
  - DIARRHOEA [None]
  - FLATULENCE [None]
  - GASTROINTESTINAL DISORDER [None]
  - IRRITABILITY [None]
  - NAUSEA [None]
  - NIGHTMARE [None]
  - PARAESTHESIA [None]
  - RESTLESS LEGS SYNDROME [None]
  - SUICIDAL IDEATION [None]
  - TINNITUS [None]
  - VOMITING [None]
  - WEIGHT INCREASED [None]
  - WITHDRAWAL SYNDROME [None]
